FAERS Safety Report 7265754-8 (Version None)
Quarter: 2011Q1

REPORT INFORMATION
  Report Type: 
  Country: None (occurrence: None)
  Receive Date: 20110131
  Receipt Date: 20110117
  Transmission Date: 20110831
  Serious: Yes (Hospitalization, Other)
  Sender: FDA-Public Use
  Company Number: US-ELI_LILLY_AND_COMPANY-US200803001331

PATIENT
  Sex: Male

DRUGS (30)
  1. FERROUS SULFATE TAB [Concomitant]
     Dosage: 325 MG, DAILY (1/D)
  2. FLOMAX [Concomitant]
     Dosage: 0.4 MG, EACH EVENING
  3. DOCUSATE SODIUM [Concomitant]
     Dosage: 100 MG, 2/D
  4. PREDNISONE [Concomitant]
     Indication: HYPERSENSITIVITY
     Dosage: 1 D/F, AS NEEDED
  5. MULTI-VITAMIN [Concomitant]
     Dosage: 1 D/F, DAILY (1/D)
  6. XALATAN [Concomitant]
  7. OMEPRAZOLE [Concomitant]
  8. CYMBALTA [Suspect]
     Indication: DEPRESSION
     Dosage: 30 MG, 2/D
  9. PREVACID [Concomitant]
     Dosage: 30 MG, DAILY (1/D)
  10. LEVOTHYROXINE SODIUM [Concomitant]
     Dosage: 137 UG, DAILY (1/D)
  11. VITAMIN B-12 [Concomitant]
     Dosage: 1000 MG, DAILY (1/D)
  12. PULMICORT [Concomitant]
     Indication: DYSPNOEA
     Dosage: 2 D/F, AS NEEDED
     Route: 055
  13. TIMOLOL [Concomitant]
  14. REMERON [Concomitant]
     Dosage: 45 MG, EACH EVENING
  15. TOPROL-XL [Concomitant]
     Dosage: 50 MG, 2/D
  16. CARDIZEM [Concomitant]
     Dosage: 180 MG, 2/D
  17. ASTELIN [Concomitant]
     Indication: HYPERSENSITIVITY
     Dosage: 2 D/F, AS NEEDED
  18. ZYRTEC [Concomitant]
  19. GLUCOSAMINE/CHONDROITIN            /01625901/ [Concomitant]
     Dosage: 1 D/F, 3/D
  20. LORAZEPAM [Concomitant]
     Indication: ANXIETY
     Dosage: 1 MG, 3/D
  21. MAALOX [Concomitant]
     Indication: DYSPEPSIA
     Dosage: 2 D/F, AS NEEDED
  22. ATIVAN [Concomitant]
     Dosage: 1 MG, 3/D
  23. COUMADIN [Concomitant]
     Dosage: 1 D/F, UNK
  24. GLEEVEC [Concomitant]
     Dosage: 400 MG, EACH EVENING
  25. SINGULAIR [Concomitant]
     Dosage: 10 MG, EACH EVENING
  26. LORATADINE [Concomitant]
     Dosage: 10 MG, EACH EVENING
  27. TRAMADOL HYDROCHLORIDE [Concomitant]
     Indication: PAIN
     Dosage: 50 MG, AS NEEDED
  28. PROVENTIL                               /USA/ [Concomitant]
     Indication: DYSPNOEA
     Dosage: 2 D/F, AS NEEDED
  29. PROCRIT [Concomitant]
     Dosage: 1 D/F, AS NEEDED
  30. TYLENOL                           /SCH/ [Concomitant]
     Indication: PAIN
     Dosage: 2 D/F, AS NEEDED

REACTIONS (25)
  - SKIN NEOPLASM EXCISION [None]
  - GOUT [None]
  - OSTEOARTHRITIS [None]
  - RETINOPEXY [None]
  - DYSPHAGIA [None]
  - POLYPECTOMY [None]
  - GLAUCOMA [None]
  - ATRIOVENTRICULAR BLOCK SECOND DEGREE [None]
  - MEMORY IMPAIRMENT [None]
  - CATARACT OPERATION [None]
  - ATRIAL FIBRILLATION [None]
  - GAIT DISTURBANCE [None]
  - HALLUCINATION, VISUAL [None]
  - VISION BLURRED [None]
  - SPINAL FRACTURE [None]
  - PROSTATE CANCER [None]
  - CHRONIC MYELOID LEUKAEMIA [None]
  - DELIRIUM [None]
  - INCOHERENT [None]
  - SLEEP APNOEA SYNDROME [None]
  - DYSPNOEA [None]
  - CARDIAC PACEMAKER REVISION [None]
  - DRUG WITHDRAWAL SYNDROME [None]
  - MACULAR DEGENERATION [None]
  - ARTHRALGIA [None]
